FAERS Safety Report 24868727 (Version 1)
Quarter: 2025Q1

REPORT INFORMATION
  Report Type: Spontaneous
  Country: CA (occurrence: None)
  Receive Date: 20250117
  Receipt Date: 20250117
  Transmission Date: 20250408
  Serious: No
  Sender: FDA-CTU
  Company Number: None

PATIENT
  Age: 33 Year
  Sex: Female
  Weight: 81 kg

DRUGS (1)
  1. AVASTIN [Suspect]
     Active Substance: BEVACIZUMAB

REACTIONS (14)
  - Off label use [None]
  - Eye infection [None]
  - Nausea [None]
  - Abdominal pain upper [None]
  - Malaise [None]
  - Palpitations [None]
  - Dizziness [None]
  - Somnolence [None]
  - Headache [None]
  - Pain in extremity [None]
  - Electric shock sensation [None]
  - Back pain [None]
  - Hypoaesthesia [None]
  - Diarrhoea [None]

NARRATIVE: CASE EVENT DATE: 20250101
